FAERS Safety Report 20662163 (Version 1)
Quarter: 2022Q2

REPORT INFORMATION
  Report Type: Spontaneous
  Country: CA (occurrence: CA)
  Receive Date: 20220401
  Receipt Date: 20220401
  Transmission Date: 20220721
  Serious: Yes (Life-Threatening, Other)
  Sender: FDA-Public Use
  Company Number: CA-CELLTRION INC.-2022CA003824

PATIENT

DRUGS (1)
  1. TRUXIMA [Suspect]
     Active Substance: RITUXIMAB-ABBS
     Indication: Myasthenia gravis
     Dosage: 1000MG Q 2 WEEKS X 2 DOSES (TOTAL : 2000MG)
     Route: 042

REACTIONS (4)
  - Myasthenia gravis [Unknown]
  - Insurance issue [Unknown]
  - Inability to afford medication [Unknown]
  - Off label use [Unknown]
